FAERS Safety Report 21387860 (Version 2)
Quarter: 2023Q2

REPORT INFORMATION
  Report Type: Report from Study
  Country: US (occurrence: US)
  Receive Date: 20220928
  Receipt Date: 20230411
  Transmission Date: 20230722
  Serious: Yes (Other)
  Sender: FDA-Public Use
  Company Number: US-ABBVIE-22K-163-4475817-00

PATIENT
  Sex: Female

DRUGS (5)
  1. HUMIRA [Suspect]
     Active Substance: ADALIMUMAB
     Indication: Uveitis
     Dosage: CITRATE FREE
     Route: 058
  2. HUMIRA [Suspect]
     Active Substance: ADALIMUMAB
     Route: 058
  3. HUMIRA [Suspect]
     Active Substance: ADALIMUMAB
     Dosage: CITRATE FREE
     Route: 058
  4. PFIZER-BIONTECH COVID-19 VACCINE [Concomitant]
     Active Substance: TOZINAMERAN
     Indication: COVID-19 immunisation
     Dosage: TIME INTERVAL: 1 TOTAL: 1 IN ONCE
     Route: 030
  5. PFIZER-BIONTECH COVID-19 VACCINE [Concomitant]
     Active Substance: TOZINAMERAN
     Indication: COVID-19 immunisation
     Dosage: TIME INTERVAL: 1 TOTAL: 1 IN ONCE?BOOSTER DOSE
     Route: 030

REACTIONS (10)
  - Cataract [Unknown]
  - Inflammation [Unknown]
  - Uveitis [Unknown]
  - Eye inflammation [Recovering/Resolving]
  - Injection site bruising [Unknown]
  - Pain [Unknown]
  - Therapeutic product effect decreased [Unknown]
  - Drug resistance [Unknown]
  - Burning sensation [Unknown]
  - Therapeutic response shortened [Recovering/Resolving]
